FAERS Safety Report 25520486 (Version 1)
Quarter: 2025Q3

REPORT INFORMATION
  Report Type: Spontaneous
  Country: BR (occurrence: BR)
  Receive Date: 20250704
  Receipt Date: 20250704
  Transmission Date: 20251020
  Serious: Yes (Other)
  Sender: NOVARTIS
  Company Number: BR-002147023-NVSC2025BR106837

PATIENT
  Age: 58 Year
  Sex: Female
  Weight: 82 kg

DRUGS (2)
  1. COSENTYX [Suspect]
     Active Substance: SECUKINUMAB
     Indication: Rheumatoid arthritis
     Dosage: UNK, QMO
     Route: 065
     Dates: start: 202501
  2. COSENTYX [Suspect]
     Active Substance: SECUKINUMAB
     Indication: Ankylosing spondylitis

REACTIONS (5)
  - Dupuytren^s contracture [Unknown]
  - Spinal pain [Unknown]
  - Joint swelling [Unknown]
  - Paraesthesia [Unknown]
  - Peripheral swelling [Unknown]

NARRATIVE: CASE EVENT DATE: 20250620
